FAERS Safety Report 8095954-9 (Version None)
Quarter: 2012Q1

REPORT INFORMATION
  Report Type: 
  Country: None (occurrence: None)
  Receive Date: 20120129
  Receipt Date: 20111215
  Transmission Date: 20120608
  Serious: No
  Sender: FDA-Public Use
  Company Number: US-ABBOTT-11P-163-0883641-00

PATIENT
  Age: 39 Year
  Sex: Female

DRUGS (5)
  1. HUMIRA [Suspect]
     Indication: CROHN'S DISEASE
     Dosage: LOADING DOSE; 160 MG X 1 DOSE ONLY
     Dates: start: 20111214, end: 20111214
  2. TRAZODONE HCL [Concomitant]
     Indication: INSOMNIA
     Dosage: AT BEDTIME
  3. FLUOXETINE [Concomitant]
     Indication: PREMENSTRUAL SYNDROME
  4. BUDESONIDE [Concomitant]
     Indication: CROHN'S DISEASE
  5. PENTASA [Concomitant]
     Indication: CROHN'S DISEASE

REACTIONS (5)
  - ABDOMINAL PAIN [None]
  - INJECTION SITE HAEMORRHAGE [None]
  - INJECTION SITE PAIN [None]
  - DIZZINESS [None]
  - INJECTION SITE HAEMATOMA [None]
